FAERS Safety Report 10441889 (Version 3)
Quarter: 2015Q1

REPORT INFORMATION
  Report Type: Report from Study
  Country: JP (occurrence: JP)
  Receive Date: 20140909
  Receipt Date: 20150203
  Transmission Date: 20150720
  Serious: Yes (Hospitalization)
  Sender: FDA-Public Use
  Company Number: JP-ASTRAZENECA-2013SE76637

PATIENT
  Age: 55 Year
  Sex: Female

DRUGS (42)
  1. CRESTOR [Suspect]
     Active Substance: ROSUVASTATIN CALCIUM
     Indication: HYPERCHOLESTEROLAEMIA
     Route: 048
     Dates: start: 20130703, end: 20130815
  2. CRESTOR [Suspect]
     Active Substance: ROSUVASTATIN CALCIUM
     Indication: HYPERCHOLESTEROLAEMIA
     Route: 048
     Dates: start: 20140606
  3. METGLUCO [Concomitant]
     Active Substance: METFORMIN HYDROCHLORIDE
     Indication: DIABETES MELLITUS
     Route: 065
     Dates: start: 20130913
  4. CELECOX [Concomitant]
     Active Substance: CELECOXIB
     Route: 048
     Dates: start: 20130719
  5. SUREPOST [Concomitant]
     Active Substance: REPAGLINIDE
     Indication: DIABETES MELLITUS
     Route: 065
     Dates: start: 20140307
  6. LIOVEL [Concomitant]
     Active Substance: ALOGLIPTIN BENZOATE\PIOGLITAZONE HYDROCHLORIDE
     Indication: DIABETES MELLITUS
     Route: 048
     Dates: start: 20131206
  7. TERBINAFINE [Concomitant]
     Active Substance: TERBINAFINE
     Route: 048
     Dates: start: 20130703
  8. RIZABEN [Concomitant]
     Active Substance: TRANILAST
     Route: 048
     Dates: start: 20131115, end: 20131205
  9. ASTOMIN [Concomitant]
     Active Substance: DIMEMORFAN
     Route: 048
     Dates: start: 20140307, end: 20140314
  10. TAKEPRON [Concomitant]
     Active Substance: LANSOPRAZOLE
     Route: 048
     Dates: start: 20120629
  11. BIOFERMIN R [Concomitant]
     Active Substance: BACILLUS SUBTILIS\LACTOBACILLUS ACIDOPHILUS\STREPTOCOCCUS FAECAIS
     Route: 048
     Dates: start: 20131005, end: 20131011
  12. MUCOFILIN [Concomitant]
     Route: 048
     Dates: start: 20131007, end: 20131014
  13. SELTOUCH [Concomitant]
     Active Substance: FELBINAC
     Dosage: ADEQUATE DOSE
     Route: 062
     Dates: start: 20130719, end: 20130815
  14. MENTAX [Concomitant]
     Active Substance: BUTENAFINE HYDROCHLORIDE
     Dosage: ADEQUATE DOSE
     Route: 062
     Dates: start: 20130719, end: 20131027
  15. NIZORAL [Concomitant]
     Active Substance: KETOCONAZOLE
     Dosage: ADEQUATE DOSE
     Route: 062
     Dates: start: 20130719, end: 20131027
  16. GENTACIN [Concomitant]
     Active Substance: GENTAMICIN SULFATE
     Dosage: ADEQUATE DOSE
     Route: 062
     Dates: start: 20131101, end: 20131107
  17. CRESTOR [Suspect]
     Active Substance: ROSUVASTATIN CALCIUM
     Indication: HYPERCHOLESTEROLAEMIA
     Route: 048
     Dates: start: 20130816, end: 20140605
  18. TRANEXAMIC ACID. [Concomitant]
     Active Substance: TRANEXAMIC ACID
     Route: 065
     Dates: start: 20131005, end: 20131011
  19. DETOMEFAN [Concomitant]
     Route: 048
     Dates: start: 20131007, end: 20131014
  20. BASEN OD [Concomitant]
     Active Substance: VOGLIBOSE
     Indication: DIABETES MELLITUS
     Route: 065
     Dates: start: 20130621
  21. SUREPOST [Concomitant]
     Active Substance: REPAGLINIDE
     Indication: DIABETES MELLITUS
     Route: 065
     Dates: start: 20130706, end: 20140306
  22. FLUMETHOLON [Concomitant]
     Active Substance: FLUOROMETHOLONE
     Route: 047
     Dates: start: 20140110
  23. ZITHROMAC [Concomitant]
     Active Substance: AZITHROMYCIN DIHYDRATE
     Route: 065
     Dates: start: 20140124, end: 20140127
  24. MONTELUKAST [Concomitant]
     Active Substance: MONTELUKAST SODIUM
     Route: 065
     Dates: start: 20140124, end: 20140207
  25. RESPLEN [Concomitant]
     Active Substance: EPRAZINONE
     Route: 048
     Dates: start: 20140124, end: 20140131
  26. NESINA [Concomitant]
     Active Substance: ALOGLIPTIN BENZOATE
     Indication: DIABETES MELLITUS
     Route: 065
     Dates: start: 20130708, end: 20131205
  27. HIRUDOID [Concomitant]
     Active Substance: GLYCOSAMINOGLYCANS
     Dosage: ADEQUATE DOSE
     Route: 062
     Dates: start: 20131028, end: 20131205
  28. ARTIFICIAL TEAR MYTEAR [Concomitant]
     Route: 047
     Dates: start: 20140110
  29. PL [Concomitant]
     Active Substance: ACETAMINOPHEN\CAFFEINE\PROMETHAZINE\SALICYLAMIDE
     Route: 048
     Dates: start: 20140307, end: 20140414
  30. METGLUCO [Concomitant]
     Active Substance: METFORMIN HYDROCHLORIDE
     Indication: DIABETES MELLITUS
     Route: 065
     Dates: start: 20130621, end: 20130912
  31. MEIACT [Concomitant]
     Active Substance: CEFDITOREN PIVOXIL
     Route: 048
     Dates: start: 20131005, end: 20131011
  32. RESTAMIN [Concomitant]
     Active Substance: DIPHENHYDRAMINE
     Dosage: ADEQUATE DOSE
     Route: 062
     Dates: start: 20130607, end: 20130815
  33. CEFCAPENE PIVOXIL HYDROCHLORIDE HYDRATE [Concomitant]
     Active Substance: CEFCAPENE PIVOXIL HYDROCHLORIDE HYDRATE
     Route: 048
     Dates: start: 20131019, end: 20131024
  34. NERISONA [Concomitant]
     Active Substance: DIFLUCORTOLONE VALERATE
     Dosage: ADEQUATE DOSE
     Route: 062
     Dates: start: 20131028, end: 20131205
  35. FLOMOX [Concomitant]
     Active Substance: CEFCAPENE PIVOXIL HYDROCHLORIDE HYDRATE
     Route: 048
     Dates: start: 20140307, end: 20140314
  36. METHYCOOL [Concomitant]
     Active Substance: METHYLCOBALAMIN
     Route: 065
     Dates: start: 20140307
  37. DETOMEFAN [Concomitant]
     Route: 048
     Dates: start: 20140124, end: 20140131
  38. CEFCAPENE PIVOXIL HYDROCHLORIDE HYDRATE [Concomitant]
     Active Substance: CEFCAPENE PIVOXIL HYDROCHLORIDE HYDRATE
     Route: 048
     Dates: start: 20131028, end: 20131102
  39. TARIVID [Concomitant]
     Active Substance: OFLOXACIN
     Dosage: ADEQUATE DOSE
     Route: 062
     Dates: start: 20140110, end: 20140403
  40. MUCOBULIN [Concomitant]
     Active Substance: AMBROXOL HYDROCHLORIDE
     Route: 048
     Dates: start: 20140124, end: 20140131
  41. METHYCOOL [Concomitant]
     Active Substance: METHYLCOBALAMIN
     Route: 048
     Dates: start: 20120629, end: 20140109
  42. RESPLEN [Concomitant]
     Active Substance: EPRAZINONE
     Route: 048
     Dates: start: 20131007, end: 20131014

REACTIONS (2)
  - Streptococcal infection [Unknown]
  - Subcutaneous abscess [Recovering/Resolving]

NARRATIVE: CASE EVENT DATE: 20131005
